FAERS Safety Report 5458681-X (Version None)
Quarter: 2007Q3

REPORT INFORMATION
  Report Type: 
  Country: None (occurrence: None)
  Receive Date: 20070919
  Receipt Date: 20070417
  Transmission Date: 20080115
  Serious: Yes (Other)
  Sender: FDA-Public Use
  Company Number: US-ASTRAZENECA-2007UW07467

PATIENT
  Sex: Male

DRUGS (7)
  1. SEROQUEL [Suspect]
     Indication: ANXIETY
     Dosage: 50 MG QAM, 100 MG HS
     Route: 048
  2. SEROQUEL [Suspect]
     Indication: DEPRESSION
     Dosage: 50 MG QAM, 100 MG HS
     Route: 048
  3. DILANTIN [Suspect]
  4. LAMICTAL [Concomitant]
  5. ZANTAC 150 [Concomitant]
  6. LORATADINE [Concomitant]
  7. LEXAPRO [Concomitant]

REACTIONS (2)
  - ARTHRALGIA [None]
  - CONVULSION [None]
